FAERS Safety Report 6791084-4 (Version None)
Quarter: 2010Q2

REPORT INFORMATION
  Report Type: 
  Country: None (occurrence: None)
  Receive Date: 20100624
  Receipt Date: 20100614
  Transmission Date: 20101027
  Serious: Yes (Death, Hospitalization, Other)
  Sender: FDA-Public Use
  Company Number: US-ELI_LILLY_AND_COMPANY-US201005002778

PATIENT
  Sex: Female
  Weight: 48.073 kg

DRUGS (1)
  1. FORTEO [Suspect]
     Indication: OSTEOPOROSIS
     Dosage: 20 UG, DAILY (1/D)
     Dates: start: 20081223

REACTIONS (4)
  - CARDIAC DISORDER [None]
  - FALL [None]
  - HIP FRACTURE [None]
  - PNEUMONIA [None]
